FAERS Safety Report 21045521 (Version 2)
Quarter: 2022Q3

REPORT INFORMATION
  Report Type: Other
  Country: JP (occurrence: JP)
  Receive Date: 20220706
  Receipt Date: 20220708
  Transmission Date: 20221026
  Serious: Yes (Other)
  Sender: FDA-Public Use
  Company Number: JP-BAUSCH-BL-2022-017169

PATIENT

DRUGS (2)
  1. BRODALUMAB [Suspect]
     Active Substance: BRODALUMAB
     Indication: Psoriasis
     Dosage: 210 MG, 1X/WEEK (DAY1,WEEK 1, WEEK 2)
     Route: 058
  2. BRODALUMAB [Suspect]
     Active Substance: BRODALUMAB
     Dosage: 210 MG, 1X/2 WEEKS (48 WEEKS)
     Route: 058

REACTIONS (15)
  - Psoriatic arthropathy [Unknown]
  - Cellulitis [Unknown]
  - Oesophageal candidiasis [Unknown]
  - Oedema [Unknown]
  - Gallbladder polyp [Unknown]
  - Eczema [Unknown]
  - Psoriasis [Unknown]
  - Seborrhoeic dermatitis [Unknown]
  - Body tinea [Unknown]
  - Dermatophytosis of nail [Unknown]
  - Nasopharyngitis [Unknown]
  - Oral candidiasis [Unknown]
  - Tinea pedis [Unknown]
  - Vulvovaginal candidiasis [Unknown]
  - Arthralgia [Unknown]
